FAERS Safety Report 4289807-1 (Version None)
Quarter: 2004Q1

REPORT INFORMATION
  Report Type: 
  Country: None (occurrence: None)
  Receive Date: 20040210
  Receipt Date: 20040203
  Transmission Date: 20041129
  Serious: Yes (Hospitalization, Other)
  Sender: FDA-Public Use
  Company Number: US-GLAXOSMITHKLINE-B0322308A

PATIENT

DRUGS (5)
  1. MELPHALAN [Suspect]
     Indication: MULTIPLE MYELOMA
     Route: 065
  2. AMIFOSTINE [Concomitant]
  3. NEUPOGEN [Concomitant]
  4. CYTOXAN [Concomitant]
  5. ETOPOSIDE [Concomitant]

REACTIONS (1)
  - ATRIAL FIBRILLATION [None]
